FAERS Safety Report 16025689 (Version 1)
Quarter: 2019Q1

REPORT INFORMATION
  Report Type: Spontaneous
  Country: FR (occurrence: FR)
  Receive Date: 20190302
  Receipt Date: 20190302
  Transmission Date: 20190418
  Serious: Yes (Death, Other)
  Sender: FDA-Public Use
  Company Number: FR-AUROBINDO-AUR-APL-2019-009164

PATIENT

DRUGS (7)
  1. FLECAINIDE ZENTIVA [Suspect]
     Active Substance: FLECAINIDE
     Indication: ARRHYTHMIA
     Dosage: 100 MILLIGRAM, ONCE A DAY
     Route: 048
  2. BISOPROLOL [Suspect]
     Active Substance: BISOPROLOL
     Indication: CORONARY ARTERY INSUFFICIENCY
     Dosage: 1.25 MILLIGRAM, ONCE A DAY
     Route: 048
  3. LACRYVISC [Suspect]
     Active Substance: CARBOMER
     Indication: DRY EYE
     Dosage: 2 DOSAGE FORM, ONCE A DAY
     Route: 047
  4. MACROGOL 4000 MYLAN [Suspect]
     Active Substance: POLYETHYLENE GLYCOL 4000
     Indication: CONSTIPATION
     Dosage: UNK
     Route: 048
  5. SERESTA [Suspect]
     Active Substance: OXAZEPAM
     Indication: ANXIETY
     Dosage: 10 MILLIGRAM, ONCE A DAY
     Route: 048
  6. TAMIFLU [Suspect]
     Active Substance: OSELTAMIVIR PHOSPHATE
     Indication: ANTIVIRAL PROPHYLAXIS
     Dosage: 15 MILLIGRAM, ONCE A DAY
     Route: 048
     Dates: start: 20180206
  7. PARACETAMOL MYLAN [Suspect]
     Active Substance: ACETAMINOPHEN
     Indication: PAIN
     Dosage: 3 GRAM, ONCE A DAY
     Route: 048

REACTIONS (1)
  - Death [Fatal]

NARRATIVE: CASE EVENT DATE: 20180211
